FAERS Safety Report 25874635 (Version 1)
Quarter: 2025Q4

REPORT INFORMATION
  Report Type: Spontaneous
  Country: US (occurrence: US)
  Receive Date: 20251002
  Receipt Date: 20251002
  Transmission Date: 20260117
  Serious: No
  Sender: BIOMARIN
  Company Number: US-BIOMARINAP-US-2025-169090

PATIENT
  Sex: Male

DRUGS (1)
  1. PALYNZIQ [Suspect]
     Active Substance: PEGVALIASE-PQPZ
     Indication: Product used for unknown indication
     Dosage: 2.5 LB, UNK

REACTIONS (8)
  - Hyperhidrosis [Unknown]
  - Cold sweat [Unknown]
  - Nausea [Unknown]
  - Flatulence [Unknown]
  - Feeling abnormal [Unknown]
  - Eructation [Unknown]
  - Abdominal discomfort [Unknown]
  - Product storage error [Unknown]
